FAERS Safety Report 22263516 (Version 1)
Quarter: 2023Q2

REPORT INFORMATION
  Report Type: Spontaneous
  Country: US (occurrence: None)
  Receive Date: 20230426
  Receipt Date: 20230426
  Transmission Date: 20230722
  Serious: Yes (Hospitalization)
  Sender: FDA-Public Use
  Company Number: None

PATIENT
  Age: 67 Year
  Sex: Female

DRUGS (18)
  1. ACTEMRA [Suspect]
     Active Substance: TOCILIZUMAB
     Indication: Rheumatoid arthritis
     Dosage: OTHER QUANTITY : 162MG/0.9ML;?FREQUENCY : WEEKLY;?
     Route: 058
     Dates: start: 20181113
  2. ASPIRIN LOW TAB EC [Concomitant]
  3. BENADRYL CAP [Concomitant]
  4. DOXYCYCL HYC TAB [Concomitant]
  5. HUMALOG [Concomitant]
     Active Substance: INSULIN LISPRO
  6. LANTUS [Concomitant]
     Active Substance: INSULIN GLARGINE
  7. LEFLUNOMIDE [Concomitant]
     Active Substance: LEFLUNOMIDE
  8. LOSARTAN POT TAB [Concomitant]
  9. METFORMIN TAB ER [Concomitant]
  10. METOPROLOL TAR TAB [Concomitant]
  11. OMEPRAZOLE SODIUM [Concomitant]
     Active Substance: OMEPRAZOLE SODIUM
  12. PLAQUENIL [Concomitant]
     Active Substance: HYDROXYCHLOROQUINE SULFATE
  13. PREDNISONE [Concomitant]
     Active Substance: PREDNISONE
  14. SYNTHROID TAB [Concomitant]
  15. TRAMADOL HCL TAB [Concomitant]
  16. TRULICITY [Concomitant]
  17. VITAMIN B12 [Concomitant]
  18. VITAMIN D3 [Concomitant]
     Active Substance: CHOLECALCIFEROL

REACTIONS (3)
  - Rheumatoid arthritis [None]
  - Pneumonia [None]
  - Therapy interrupted [None]

NARRATIVE: CASE EVENT DATE: 20230404
